FAERS Safety Report 13024154 (Version 5)
Quarter: 2017Q2

REPORT INFORMATION
  Report Type: Spontaneous
  Country: US (occurrence: US)
  Receive Date: 20161213
  Receipt Date: 20170630
  Transmission Date: 20170830
  Serious: Yes (Hospitalization)
  Sender: FDA-Public Use
  Company Number: US-PFIZER INC-2016570901

PATIENT
  Age: 40 Year
  Sex: Female

DRUGS (3)
  1. FLAGYL [Suspect]
     Active Substance: METRONIDAZOLE\METRONIDAZOLE HYDROCHLORIDE
     Indication: VAGINAL DISORDER
  2. FLAGYL [Suspect]
     Active Substance: METRONIDAZOLE\METRONIDAZOLE HYDROCHLORIDE
     Indication: GENITAL INFECTION FEMALE
     Dosage: 250 MG, UNK
     Dates: start: 198409
  3. FLAGYL [Suspect]
     Active Substance: METRONIDAZOLE\METRONIDAZOLE HYDROCHLORIDE
     Indication: VULVOVAGINAL PRURITUS

REACTIONS (3)
  - Drug hypersensitivity [Recovered/Resolved]
  - Hypotension [Unknown]
  - Swelling [Unknown]

NARRATIVE: CASE EVENT DATE: 198409
